FAERS Safety Report 15046492 (Version 9)
Quarter: 2019Q3

REPORT INFORMATION
  Report Type: Spontaneous
  Country: US (occurrence: US)
  Receive Date: 20180621
  Receipt Date: 20190822
  Transmission Date: 20191004
  Serious: Yes (Hospitalization, Other)
  Sender: FDA-Public Use
  Company Number: US-ACTELION-A-US2018-173959

PATIENT
  Age: 68 Year
  Sex: Male

DRUGS (13)
  1. POTASSIUM [Concomitant]
     Active Substance: POTASSIUM
     Dosage: 20 MEQ, BID
  2. ELIQUIS [Concomitant]
     Active Substance: APIXABAN
  3. SUCRALFATE. [Concomitant]
     Active Substance: SUCRALFATE
  4. METOPROLOL. [Concomitant]
     Active Substance: METOPROLOL
     Dosage: 100 MG, BID
     Dates: start: 201805
  5. TAMSULOSIN [Concomitant]
     Active Substance: TAMSULOSIN
     Dosage: .4 MG, QD
     Dates: start: 201806
  6. OPSUMIT [Suspect]
     Active Substance: MACITENTAN
     Indication: PULMONARY ARTERIAL HYPERTENSION
     Dosage: 10 MG, QD
     Route: 048
     Dates: start: 20180531
  7. DULOXETINE. [Concomitant]
     Active Substance: DULOXETINE
     Dosage: 60 MG, BID
  8. COUMADIN [Concomitant]
     Active Substance: WARFARIN SODIUM
  9. PROTONIX [Concomitant]
     Active Substance: PANTOPRAZOLE SODIUM
  10. THIAMIN [Concomitant]
     Active Substance: THIAMINE
  11. TYLENOL WITH CODEINE [Concomitant]
     Active Substance: ACETAMINOPHEN\CODEINE PHOSPHATE
     Dosage: 300/30 MG, PRN
     Dates: start: 201706
  12. FOLIC ACID. [Concomitant]
     Active Substance: FOLIC ACID
  13. OMEPRAZOLE. [Concomitant]
     Active Substance: OMEPRAZOLE
     Dosage: 20 MG, BID

REACTIONS (23)
  - Hepatomegaly [Unknown]
  - Insomnia [Not Recovered/Not Resolved]
  - Headache [Not Recovered/Not Resolved]
  - Unevaluable event [Unknown]
  - Pneumonia [Not Recovered/Not Resolved]
  - Hospitalisation [Unknown]
  - Feeling cold [Not Recovered/Not Resolved]
  - Anaemia [Not Recovered/Not Resolved]
  - Blood iron decreased [Unknown]
  - Bronchitis [Unknown]
  - Hypercoagulation [Unknown]
  - Gastrointestinal haemorrhage [Unknown]
  - Portal hypertension [Unknown]
  - Pain [Unknown]
  - Coagulation test abnormal [Not Recovered/Not Resolved]
  - Dyskinesia [Unknown]
  - Pleurisy [Unknown]
  - Hip arthroplasty [Unknown]
  - Neuropathy peripheral [Unknown]
  - Pallor [Not Recovered/Not Resolved]
  - Vitamin B12 decreased [Unknown]
  - Condition aggravated [Not Recovered/Not Resolved]
  - Atrial fibrillation [Unknown]

NARRATIVE: CASE EVENT DATE: 20180605
